FAERS Safety Report 8100650-5 (Version None)
Quarter: 2012Q1

REPORT INFORMATION
  Report Type: 
  Country: None (occurrence: None)
  Receive Date: 20120131
  Receipt Date: 20120117
  Transmission Date: 20120608
  Serious: Yes (Hospitalization, Other)
  Sender: FDA-Public Use
  Company Number: CA-JNJFOC-20120112592

PATIENT
  Sex: Female
  Weight: 66 kg

DRUGS (2)
  1. REMICADE [Suspect]
     Indication: CROHN'S DISEASE
     Route: 042
     Dates: start: 20050901
  2. REMICADE [Suspect]
     Route: 042
     Dates: start: 20111122

REACTIONS (5)
  - PAIN [None]
  - IMPAIRED GASTRIC EMPTYING [None]
  - DIARRHOEA [None]
  - NAUSEA [None]
  - VOMITING [None]
